FAERS Safety Report 6771459-X (Version None)
Quarter: 2010Q2

REPORT INFORMATION
  Report Type: 
  Country: None (occurrence: None)
  Receive Date: 20100616
  Receipt Date: 20100610
  Transmission Date: 20101027
  Serious: Yes (Hospitalization)
  Sender: FDA-Public Use
  Company Number: GB-ROCHE-702853

PATIENT
  Sex: Female
  Weight: 77 kg

DRUGS (8)
  1. CAPECITABINE [Suspect]
     Indication: COLON CANCER
     Dosage: FREQUENCY: OD
     Route: 048
     Dates: start: 20100408
  2. BEVACIZUMAB [Suspect]
     Indication: COLON CANCER
     Dosage: CYCLE 1
     Route: 042
     Dates: start: 20100408
  3. FUROSEMIDE [Concomitant]
     Route: 042
  4. PERINDOPRIL [Concomitant]
     Indication: HYPERTENSION
     Route: 048
  5. AMLODIPINE [Concomitant]
     Indication: HYPERTENSION
     Route: 048
  6. CHLORPHENAMINE [Concomitant]
     Route: 048
     Dates: start: 20100509
  7. SIMVASTATIN [Concomitant]
     Indication: LIPIDS ABNORMAL
     Route: 048
  8. ATENOLOL [Concomitant]
     Indication: DRUG THERAPY
     Route: 048

REACTIONS (2)
  - ABDOMINAL PAIN [None]
  - DIVERTICULAR PERFORATION [None]
